FAERS Safety Report 16683123 (Version 1)
Quarter: 2019Q3

REPORT INFORMATION
  Report Type: Spontaneous
  Country: US (occurrence: US)
  Receive Date: 20190807
  Receipt Date: 20190807
  Transmission Date: 20191007
  Serious: Yes (Hospitalization)
  Sender: FDA-Public Use
  Company Number: None

PATIENT
  Age: 60 Year
  Sex: Female

DRUGS (1)
  1. SILDENAFIL. [Suspect]
     Active Substance: SILDENAFIL
     Route: 048
     Dates: start: 20180330

REACTIONS (10)
  - Cardiac murmur [None]
  - Dyspnoea [None]
  - Therapy cessation [None]
  - Fluid retention [None]
  - Intra-abdominal fluid collection [None]
  - Fatigue [None]
  - Fall [None]
  - Soft tissue disorder [None]
  - Abdominal distension [None]
  - Malaise [None]

NARRATIVE: CASE EVENT DATE: 20190706
